FAERS Safety Report 22616975 (Version 1)
Quarter: 2023Q2

REPORT INFORMATION
  Report Type: Report from Study
  Country: BR (occurrence: BR)
  Receive Date: 20230619
  Receipt Date: 20230619
  Transmission Date: 20230722
  Serious: Yes (Death, Other)
  Sender: FDA-Public Use
  Company Number: BR-MALLINCKRODT-MNK202302500

PATIENT
  Sex: Male

DRUGS (5)
  1. UVADEX [Suspect]
     Active Substance: METHOXSALEN
     Indication: Chronic graft versus host disease in lung
     Dosage: UNKNOWN
     Route: 050
  2. UVADEX [Suspect]
     Active Substance: METHOXSALEN
     Indication: Chronic graft versus host disease oral
  3. UVADEX [Suspect]
     Active Substance: METHOXSALEN
     Indication: Chronic graft versus host disease in skin
  4. MYCOPHENOLATE MOFETIL [Concomitant]
     Active Substance: MYCOPHENOLATE MOFETIL
     Indication: Product used for unknown indication
     Dosage: UNKNOWN
  5. PREDNISONE [Concomitant]
     Active Substance: PREDNISONE
     Indication: Product used for unknown indication
     Dosage: UNKNOWN

REACTIONS (5)
  - Chronic graft versus host disease [Fatal]
  - Disease progression [Fatal]
  - Cytomegalovirus infection [Unknown]
  - Respiratory tract infection [Unknown]
  - Treatment failure [Unknown]
